FAERS Safety Report 9308954 (Version 1)
Quarter: 2013Q2

REPORT INFORMATION
  Report Type: Spontaneous
  Country: US (occurrence: US)
  Receive Date: 20130524
  Receipt Date: 20130524
  Transmission Date: 20140414
  Serious: Yes (Hospitalization, Other)
  Sender: FDA-Public Use
  Company Number: GXBR2013US001079

PATIENT
  Age: 3 Year
  Sex: Female
  Weight: 17.23 kg

DRUGS (2)
  1. AMOXICILLIN [Suspect]
     Indication: PHARYNGITIS STREPTOCOCCAL
     Dosage: 7.5 ML, BID
     Route: 048
     Dates: start: 20130502, end: 20130510
  2. TYLENOL [Concomitant]
     Indication: OROPHARYNGEAL PAIN
     Dosage: UNK DF, UNK

REACTIONS (5)
  - Serum sickness [Recovered/Resolved]
  - Urticaria [Recovered/Resolved]
  - Arthralgia [Recovered/Resolved]
  - Joint swelling [Recovered/Resolved]
  - Ecchymosis [Recovered/Resolved]
